FAERS Safety Report 22107944 (Version 2)
Quarter: 2023Q1

REPORT INFORMATION
  Report Type: Spontaneous
  Country: MY (occurrence: MY)
  Receive Date: 20230317
  Receipt Date: 20230322
  Transmission Date: 20230417
  Serious: Yes (Death, Other)
  Sender: FDA-Public Use
  Company Number: MY-009507513-2303MYS005104

PATIENT
  Sex: Female

DRUGS (1)
  1. JANUMET [Suspect]
     Active Substance: METFORMIN HYDROCHLORIDE\SITAGLIPTIN PHOSPHATE
     Dosage: HALF TABLET
     Route: 048

REACTIONS (5)
  - Death [Fatal]
  - Wrong technique in product usage process [Unknown]
  - Product prescribing issue [Unknown]
  - Product use issue [Unknown]
  - Incorrect dose administered [Unknown]
